FAERS Safety Report 10077913 (Version 1)
Quarter: 2014Q2

REPORT INFORMATION
  Report Type: Report from Study
  Country: FR (occurrence: FR)
  Receive Date: 20140415
  Receipt Date: 20140415
  Transmission Date: 20141212
  Serious: Yes (Other)
  Sender: FDA-Public Use
  Company Number: FR-UCBSA-117783

PATIENT
  Sex: Female
  Weight: 88 kg

DRUGS (2)
  1. CIMZIA [Suspect]
     Indication: RHEUMATOID ARTHRITIS
     Route: 058
     Dates: start: 20120625
  2. NO ANY CO-MEDICATIONS [Concomitant]

REACTIONS (2)
  - Cataract [Unknown]
  - Blepharitis [Unknown]
